FAERS Safety Report 9135845 (Version 2)
Quarter: 2013Q2

REPORT INFORMATION
  Report Type: Spontaneous
  Country: GB (occurrence: None)
  Receive Date: 20130130
  Receipt Date: 20130409
  Transmission Date: 20140414
  Serious: Yes (Death)
  Sender: FDA-Public Use
  Company Number: 2013MPI00032

PATIENT
  Age: 21 Year
  Sex: Male

DRUGS (1)
  1. ADCETRIS [Suspect]
     Indication: ANAPLASTIC LARGE CELL LYMPHOMA T- AND NULL-CELL TYPES
     Dosage: UNK  UNK,  QCYCLE?06/--/2009  TO  12/--/2009
     Dates: start: 200906, end: 200912

REACTIONS (1)
  - Complications of bone marrow transplant [None]
